FAERS Safety Report 8786246 (Version 2)
Quarter: 2012Q4

REPORT INFORMATION
  Report Type: 
  Country: US (occurrence: US)
  Receive Date: 20120914
  Receipt Date: 20121017
  Transmission Date: 20130627
  Serious: Yes (Other)
  Sender: FDA-Public Use
  Company Number: US-PFIZER INC-2012226158

PATIENT
  Age: 67 Year
  Sex: Male
  Weight: 134.24 kg

DRUGS (17)
  1. LYRICA [Suspect]
     Indication: NEUROPATHY PERIPHERAL
     Dosage: 150 mg, 1x/day
     Route: 048
     Dates: start: 201201
  2. LISINOPRIL [Concomitant]
     Indication: HYPERTENSION
     Dosage: 10 mg, 1x/day
  3. COUMADIN [Concomitant]
     Dosage: UNK
  4. LASIX [Concomitant]
     Dosage: 40 mg, UNK
  5. POTASSIUM [Concomitant]
     Dosage: 10 mg, UNK
  6. DEPO-TESTOSTERONE [Concomitant]
     Dosage: UNK, 2x/month
  7. DUONEB [Concomitant]
     Indication: ASTHMA
     Dosage: UNK
  8. QVAR [Concomitant]
     Dosage: 80 ug, 1x/day
  9. MIRALAX [Concomitant]
     Indication: CONSTIPATION
     Dosage: UNK, 2x/day
  10. NAPROXEN [Concomitant]
     Indication: OSTEOARTHRITIS
     Dosage: 660 mg, 2x/day
  11. ALBUTEROL [Concomitant]
     Dosage: UNK, as needed
  12. CALCIUM [Concomitant]
     Dosage: UNK
  13. VITAMIN B12 [Concomitant]
     Dosage: UNK
     Route: 048
  14. VITAMIN B COMPLEX 100 [Concomitant]
     Dosage: UNK
  15. VITAMIN C [Concomitant]
     Dosage: UNK
  16. OXYGEN [Concomitant]
     Indication: DYSPNOEA
     Dosage: UNK
     Route: 045
  17. FIBERTAB [Concomitant]
     Dosage: UNK

REACTIONS (4)
  - Breakthrough pain [Recovered/Resolved]
  - Neuralgia [Recovered/Resolved]
  - Insomnia [Recovered/Resolved]
  - Drug effect incomplete [Unknown]
